FAERS Safety Report 9225585 (Version 2)
Quarter: 2013Q2

REPORT INFORMATION
  Report Type: Report from Study
  Country: IT (occurrence: IT)
  Receive Date: 20130411
  Receipt Date: 20130618
  Transmission Date: 20140414
  Serious: Yes (Death, Other)
  Sender: FDA-Public Use
  Company Number: IT-ROCHE-1209980

PATIENT
  Sex: 0

DRUGS (2)
  1. ALTEPLASE [Suspect]
     Indication: VENOOCCLUSIVE LIVER DISEASE
     Route: 042
  2. HEPARIN [Suspect]
     Indication: VENOOCCLUSIVE LIVER DISEASE
     Route: 042

REACTIONS (4)
  - Multi-organ failure [Fatal]
  - Renal impairment [Fatal]
  - Respiratory disorder [Fatal]
  - Upper gastrointestinal haemorrhage [Unknown]
